FAERS Safety Report 16247909 (Version 7)
Quarter: 2020Q3

REPORT INFORMATION
  Report Type: Spontaneous
  Country: US (occurrence: US)
  Receive Date: 20190428
  Receipt Date: 20200925
  Transmission Date: 20201102
  Serious: No
  Sender: FDA-Public Use
  Company Number: US-BIOGEN-2018BI00608966

PATIENT
  Sex: Female

DRUGS (1)
  1. TYSABRI [Suspect]
     Active Substance: NATALIZUMAB
     Indication: MULTIPLE SCLEROSIS
     Route: 050
     Dates: start: 20120326

REACTIONS (15)
  - Body temperature fluctuation [Unknown]
  - Poor venous access [Unknown]
  - Infusion site pain [Unknown]
  - Fatigue [Unknown]
  - Cognitive disorder [Not Recovered/Not Resolved]
  - Onychoclasis [Not Recovered/Not Resolved]
  - Anxiety [Unknown]
  - Stress [Unknown]
  - Product dose omission issue [Unknown]
  - Alopecia [Not Recovered/Not Resolved]
  - Depression [Unknown]
  - Claustrophobia [Unknown]
  - Vein disorder [Unknown]
  - Tremor [Unknown]
  - Nephrolithiasis [Unknown]
